FAERS Safety Report 9852242 (Version 1)
Quarter: 2013Q4

REPORT INFORMATION
  Report Type: Spontaneous
  Country: US (occurrence: None)
  Receive Date: 20131127
  Receipt Date: 20131127
  Transmission Date: 20140711
  Serious: No
  Sender: FDA-Public Use
  Company Number: 224404LEO

PATIENT
  Age: 51 Year
  Sex: Female

DRUGS (1)
  1. PICATO (INGENOL MEBUTATE) (0.015 %) [Suspect]
     Indication: ACTINIC KERATOSIS
     Dosage: (DAILY X 3 DAYS), FOREHEAD AND CHEEKS
     Dates: start: 20131024

REACTIONS (4)
  - Application site inflammation [None]
  - Application site erythema [None]
  - Application site pain [None]
  - Application site vesicles [None]
